FAERS Safety Report 22798149 (Version 2)
Quarter: 2023Q4

REPORT INFORMATION
  Report Type: Report from Study
  Country: US (occurrence: US)
  Receive Date: 20230808
  Receipt Date: 20231110
  Transmission Date: 20240110
  Serious: Yes (Hospitalization, Other)
  Sender: FDA-Public Use
  Company Number: US-ABBVIE-5338356

PATIENT
  Sex: Female

DRUGS (1)
  1. HUMIRA [Suspect]
     Active Substance: ADALIMUMAB
     Indication: Psoriatic arthropathy
     Route: 058
     Dates: start: 20221214, end: 20230601

REACTIONS (11)
  - Coma [Recovered/Resolved]
  - Myocardial infarction [Not Recovered/Not Resolved]
  - Cardiac arrest [Unknown]
  - Uterine cancer [Not Recovered/Not Resolved]
  - Rehabilitation therapy [Recovered/Resolved]
  - Procedural haemorrhage [Unknown]
  - Thrombosis [Unknown]
  - Stent placement [Unknown]
  - Cardiac valve rupture [Unknown]
  - Respiratory disorder [Unknown]
  - Contusion [Unknown]

NARRATIVE: CASE EVENT DATE: 20230101
